FAERS Safety Report 5537986-8 (Version None)
Quarter: 2007Q4

REPORT INFORMATION
  Report Type: 
  Country: None (occurrence: None)
  Receive Date: 20071207
  Receipt Date: 20071127
  Transmission Date: 20080405
  Serious: Yes (Other)
  Sender: FDA-Public Use
  Company Number: US-PFIZER INC-2007100489

PATIENT
  Sex: Female
  Weight: 53.5 kg

DRUGS (1)
  1. DILANTIN [Suspect]
     Indication: EPILEPSY
     Route: 048

REACTIONS (10)
  - ACTIVITIES OF DAILY LIVING IMPAIRED [None]
  - ALTERED VISUAL DEPTH PERCEPTION [None]
  - ANTICONVULSANT DRUG LEVEL DECREASED [None]
  - CONFUSIONAL STATE [None]
  - CONVULSION [None]
  - DISTURBANCE IN ATTENTION [None]
  - DRUG TOXICITY [None]
  - FEELING DRUNK [None]
  - NAUSEA [None]
  - PARAESTHESIA [None]
